FAERS Safety Report 17185517 (Version 1)
Quarter: 2019Q4

REPORT INFORMATION
  Report Type: Spontaneous
  Country: US (occurrence: US)
  Receive Date: 20191220
  Receipt Date: 20191220
  Transmission Date: 20200122
  Serious: No
  Sender: FDA-Public Use
  Company Number: US-MALLINCKRODT-T201903910

PATIENT
  Sex: Female
  Weight: 89 kg

DRUGS (10)
  1. ATIVAN [Concomitant]
     Active Substance: LORAZEPAM
     Indication: NERVOUS SYSTEM DISORDER
     Dosage: UNK
     Route: 065
  2. METOPROLOL. [Concomitant]
     Active Substance: METOPROLOL
     Indication: HYPERTENSION
     Dosage: UNK
     Route: 065
  3. NEXIUM [Concomitant]
     Active Substance: ESOMEPRAZOLE MAGNESIUM
     Indication: ABDOMINAL DISCOMFORT
     Dosage: UNK
     Route: 065
  4. TRULICITY [Concomitant]
     Active Substance: DULAGLUTIDE
     Indication: HEPATIC CIRRHOSIS
     Dosage: UNK, ONCE A WEEK
     Route: 065
  5. FENTANYL TRANSDERMAL SYSTEM [Suspect]
     Active Substance: FENTANYL
     Indication: ANALGESIC THERAPY
     Dosage: 50 MCG/HR, EVERY 3RD DAY
     Route: 062
  6. ZANTAC [Concomitant]
     Active Substance: RANITIDINE HYDROCHLORIDE
     Indication: ABDOMINAL DISCOMFORT
     Dosage: UNK
     Route: 065
  7. PRAMIPEXOL [PRAMIPEXOLE] [Concomitant]
     Active Substance: PRAMIPEXOLE
     Indication: RESTLESS LEGS SYNDROME
     Dosage: UNK
     Route: 065
  8. NORTRIPTYLINE [Concomitant]
     Active Substance: NORTRIPTYLINE
     Indication: FIBROMYALGIA
     Dosage: UNK
     Route: 065
  9. FENTANYL TRANSDERMAL SYSTEM [Suspect]
     Active Substance: FENTANYL
     Indication: ANALGESIC THERAPY
     Dosage: 75 MCG/R, EVERY 3RD DAY
     Route: 062
  10. FUROSEMIDE. [Concomitant]
     Active Substance: FUROSEMIDE
     Indication: DIURETIC THERAPY
     Dosage: UNK
     Route: 065

REACTIONS (7)
  - Paraesthesia [Not Recovered/Not Resolved]
  - Fatigue [Not Recovered/Not Resolved]
  - Pruritus [Recovering/Resolving]
  - Product adhesion issue [Not Recovered/Not Resolved]
  - Insomnia [Not Recovered/Not Resolved]
  - Drug ineffective [Not Recovered/Not Resolved]
  - Treatment noncompliance [Not Recovered/Not Resolved]

NARRATIVE: CASE EVENT DATE: 2018
